FAERS Safety Report 9936625 (Version 1)
Quarter: 2014Q1

REPORT INFORMATION
  Report Type: Spontaneous
  Country: US (occurrence: US)
  Receive Date: 20140228
  Receipt Date: 20140228
  Transmission Date: 20141002
  Serious: No
  Sender: FDA-Public Use
  Company Number: US-AMGEN-USASP2014007454

PATIENT
  Age: 45 Year
  Sex: Female

DRUGS (2)
  1. ENBREL [Suspect]
     Indication: RHEUMATOID ARTHRITIS
     Dosage: UNK UNK, QWK
     Route: 065
     Dates: start: 20130522, end: 2013
  2. METHOTREXATE [Concomitant]
     Dosage: 3 PILLS ONCE A WEEK
     Route: 065

REACTIONS (8)
  - Vulvovaginal discomfort [Recovered/Resolved]
  - Vaginal discharge [Not Recovered/Not Resolved]
  - Vaginal odour [Not Recovered/Not Resolved]
  - Spinal pain [Not Recovered/Not Resolved]
  - Pain in extremity [Not Recovered/Not Resolved]
  - Arthralgia [Not Recovered/Not Resolved]
  - Back pain [Not Recovered/Not Resolved]
  - Genital infection bacterial [Not Recovered/Not Resolved]
